FAERS Safety Report 4744288-6 (Version None)
Quarter: 2005Q3

REPORT INFORMATION
  Report Type: 
  Country: None (occurrence: None)
  Receive Date: 20050809
  Receipt Date: 20050801
  Transmission Date: 20060218
  Serious: Yes (Life-Threatening, Hospitalization)
  Sender: FDA-Public Use
  Company Number: MK200410-0269-1

PATIENT
  Age: 65 Year
  Sex: Female

DRUGS (2)
  1. HEXABRIX-200 [Suspect]
     Indication: CORONARY ANGIOPLASTY
     Dosage: 420 ML, SINGLE USE, IA
     Route: 013
     Dates: start: 20040329, end: 20040329
  2. LOVENOX [Concomitant]

REACTIONS (3)
  - CONDITION AGGRAVATED [None]
  - CORONARY ARTERY THROMBOSIS [None]
  - PROCEDURAL COMPLICATION [None]
